FAERS Safety Report 5814549-8 (Version None)
Quarter: 2008Q3

REPORT INFORMATION
  Report Type: 
  Country: None (occurrence: None)
  Receive Date: 20080718
  Receipt Date: 20070821
  Transmission Date: 20090109
  Serious: No
  Sender: FDA-Public Use
  Company Number: US-KINGPHARMUSA00001-K200701066

PATIENT

DRUGS (4)
  1. LEVOXYL [Suspect]
     Indication: AUTOIMMUNE THYROIDITIS
     Dosage: 150 MCG, QD
     Dates: start: 20000101, end: 20050101
  2. LEVOXYL [Suspect]
     Dosage: 175 MCG, QD
     Route: 048
     Dates: start: 20050101, end: 20060201
  3. LEVOXYL [Suspect]
     Dosage: 200 MCG, SINGLE
     Route: 048
     Dates: start: 20060201, end: 20070701
  4. LEVOXYL [Suspect]
     Dosage: 300 MCG, QD
     Route: 048
     Dates: start: 20070701

REACTIONS (10)
  - ALOPECIA [None]
  - DISTURBANCE IN ATTENTION [None]
  - DRUG EFFECT DECREASED [None]
  - DRUG INEFFECTIVE [None]
  - INTENTIONAL DRUG MISUSE [None]
  - JOINT SWELLING [None]
  - LABORATORY TEST ABNORMAL [None]
  - NERVOUSNESS [None]
  - OEDEMA [None]
  - WEIGHT INCREASED [None]
